FAERS Safety Report 8031591-X (Version None)
Quarter: 2012Q1

REPORT INFORMATION
  Report Type: 
  Country: None (occurrence: None)
  Receive Date: 20120109
  Receipt Date: 20120102
  Transmission Date: 20120608
  Serious: Yes (Other)
  Sender: FDA-Public Use
  Company Number: IT-B.I. PHARMACEUTICALS,INC./RIDGEFIELD-2011-IT-00317IT

PATIENT
  Sex: Female

DRUGS (3)
  1. AGGRENOX [Suspect]
     Dosage: STRENGTH: 200 MG+25 MG; DAILY DOSE: 1 POSOLOGIC UNIT
     Route: 048
     Dates: start: 20101002, end: 20111001
  2. OLMESARTAN MEDOXOMIL [Suspect]
     Dosage: 20 MG
     Route: 048
     Dates: start: 20101002, end: 20111001
  3. NEBIVOLOL HCL [Suspect]
     Dosage: 5 MG
     Route: 048
     Dates: start: 20101002, end: 20111001

REACTIONS (1)
  - STEAL SYNDROME [None]
